FAERS Safety Report 7359937-6 (Version None)
Quarter: 2011Q1

REPORT INFORMATION
  Report Type: 
  Country: None (occurrence: None)
  Receive Date: 20110317
  Receipt Date: 20110307
  Transmission Date: 20110831
  Serious: Yes (Hospitalization)
  Sender: FDA-Public Use
  Company Number: US-MILLENNIUM PHARMACEUTICALS, INC.-2011-00916

PATIENT
  Age: 63 Year
  Sex: Male
  Weight: 131.3 kg

DRUGS (1)
  1. VELCADE [Suspect]
     Indication: MULTIPLE MYELOMA
     Dosage: 1.3 MG/M2, CYCLIC
     Route: 042
     Dates: start: 20100812, end: 20100923

REACTIONS (5)
  - RENAL FAILURE [None]
  - ANAEMIA [None]
  - PULMONARY HYPERTENSION [None]
  - FIBRIN D DIMER INCREASED [None]
  - DYSPNOEA [None]
